FAERS Safety Report 15982936 (Version 7)
Quarter: 2025Q2

REPORT INFORMATION
  Report Type: Report from Study
  Country: US (occurrence: US)
  Receive Date: 20190219
  Receipt Date: 20250415
  Transmission Date: 20250717
  Serious: Yes (Hospitalization, Other)
  Sender: TAKEDA
  Company Number: US-TAKEDA-2019TUS006685

PATIENT
  Sex: Female

DRUGS (25)
  1. PONATINIB [Suspect]
     Active Substance: PONATINIB
     Indication: Acute lymphocytic leukaemia
     Dosage: 15 MILLIGRAM, QD
     Dates: start: 2018
  2. PONATINIB [Suspect]
     Active Substance: PONATINIB
     Dosage: 30 MILLIGRAM, QD
     Dates: start: 20190127
  3. PONATINIB [Suspect]
     Active Substance: PONATINIB
     Dosage: 15 MILLIGRAM, QD
     Dates: end: 202402
  4. PONATINIB [Suspect]
     Active Substance: PONATINIB
     Dosage: 30 MILLIGRAM, QD
  5. VINCRISTINE SULFATE [Concomitant]
     Active Substance: VINCRISTINE SULFATE
  6. PREDNISOLONE [Concomitant]
     Active Substance: PREDNISOLONE
  7. VITAMIN B12 [Concomitant]
     Active Substance: CYANOCOBALAMIN
  8. VITAMIN D3 [Concomitant]
     Active Substance: CHOLECALCIFEROL
  9. ACYCLOVIR [Concomitant]
     Active Substance: ACYCLOVIR
  10. MERCAPTOPURINE [Concomitant]
     Active Substance: MERCAPTOPURINE
  11. METHOTREXATE [Concomitant]
     Active Substance: METHOTREXATE
  12. BACTRIM DS [Concomitant]
     Active Substance: SULFAMETHOXAZOLE\TRIMETHOPRIM
  13. GABAPENTIN [Concomitant]
     Active Substance: GABAPENTIN
  14. NOVOLOG [Concomitant]
     Active Substance: INSULIN ASPART
  15. JARDIANCE [Concomitant]
     Active Substance: EMPAGLIFLOZIN
  16. SEMAGLUTIDE [Concomitant]
     Active Substance: SEMAGLUTIDE
  17. INSULIN LISPRO [Concomitant]
     Active Substance: INSULIN LISPRO
  18. Ultra stress [Concomitant]
  19. OZEMPIC [Concomitant]
     Active Substance: SEMAGLUTIDE
  20. Vitamin b12 ultra strength [Concomitant]
  21. ICOSAPENT ETHYL [Concomitant]
     Active Substance: ICOSAPENT ETHYL
  22. MOUNJARO [Concomitant]
     Active Substance: TIRZEPATIDE
  23. OLMESARTAN MEDOXOMIL AND HYDROCHLOROTHIAZIDE [Concomitant]
     Active Substance: HYDROCHLOROTHIAZIDE\OLMESARTAN MEDOXOMIL
  24. MAGNESIUM GLUCONATE [Concomitant]
     Active Substance: MAGNESIUM GLUCONATE
  25. ZOFRAN [Concomitant]
     Active Substance: ONDANSETRON HYDROCHLORIDE

REACTIONS (8)
  - Haemorrhoids [Recovered/Resolved]
  - Constipation [Recovered/Resolved]
  - Philadelphia chromosome positive [Unknown]
  - SARS-CoV-2 test positive [Unknown]
  - Illness [Unknown]
  - Blood pressure increased [Recovered/Resolved]
  - Hypoacusis [Unknown]
  - Blood glucose increased [Recovered/Resolved]
